FAERS Safety Report 8221570 (Version 4)
Quarter: 2014Q1

REPORT INFORMATION
  Report Type: Spontaneous
  Country: US (occurrence: US)
  Receive Date: 20111102
  Receipt Date: 20140116
  Transmission Date: 20141002
  Serious: Yes (Other)
  Sender: FDA-Public Use
  Company Number: US-ROCHE-783630

PATIENT
  Age: 20 Year
  Sex: Male
  Weight: 61.74 kg

DRUGS (2)
  1. ACCUTANE [Suspect]
     Indication: ACNE
     Route: 048
     Dates: start: 200008, end: 200103
  2. MINOCIN [Concomitant]

REACTIONS (5)
  - Crohn^s disease [Unknown]
  - Inflammatory bowel disease [Unknown]
  - Stress [Unknown]
  - Large intestine polyp [Unknown]
  - Irritable bowel syndrome [Unknown]
